FAERS Safety Report 6217062-1 (Version None)
Quarter: 2009Q2

REPORT INFORMATION
  Report Type: 
  Country: None (occurrence: None)
  Receive Date: 20090606
  Receipt Date: 20090526
  Transmission Date: 20091009
  Serious: Yes (Hospitalization)
  Sender: FDA-Public Use
  Company Number: FR-PFIZER INC-2009217881

PATIENT
  Age: 87 Year

DRUGS (8)
  1. NEURONTIN [Suspect]
     Dosage: 300 MG, 3X/DAY
     Route: 048
  2. ARICEPT [Suspect]
     Indication: DEMENTIA ALZHEIMER'S TYPE
     Dosage: 10 MG, 1X/DAY
     Route: 048
  3. TRAMADOL HCL [Suspect]
     Indication: PAIN
     Dosage: 50 MG, 2X/DAY
     Route: 048
     Dates: end: 20090207
  4. MEMANTINE [Suspect]
     Indication: DEMENTIA ALZHEIMER'S TYPE
     Dosage: 10 MG, 2X/DAY
     Route: 048
  5. EQUANIL [Suspect]
     Dosage: 200 MG, 1X/DAY
     Route: 048
  6. KARDEGIC [Concomitant]
     Dosage: 1 POUCH AT MIDDAY
  7. DAFALGAN [Concomitant]
     Dosage: 6 CAPSULES PER DAY
  8. CORDARONE [Concomitant]
     Dosage: 1 TABLET PER DAY EXCEPT SATURDAY AND SUNDAY

REACTIONS (5)
  - CONFUSIONAL STATE [None]
  - DEPRESSED LEVEL OF CONSCIOUSNESS [None]
  - FALL [None]
  - MIOSIS [None]
  - RESPIRATORY DISORDER [None]
